FAERS Safety Report 4750759-9 (Version None)
Quarter: 2005Q3

REPORT INFORMATION
  Report Type: 
  Country: None (occurrence: None)
  Receive Date: 20050823
  Receipt Date: 20050502
  Transmission Date: 20060218
  Serious: Yes (Hospitalization)
  Sender: FDA-Public Use
  Company Number: US-MERCK-0505USA00387

PATIENT
  Age: 50 Year
  Sex: Male
  Weight: 70 kg

DRUGS (14)
  1. VIOXX [Suspect]
     Indication: BONE PAIN
     Route: 048
     Dates: start: 20010126, end: 20021217
  2. VIOXX [Suspect]
     Indication: ARTHRALGIA
     Route: 048
     Dates: start: 20010126, end: 20021217
  3. LEVAQUIN [Concomitant]
     Route: 065
  4. MOBIC [Concomitant]
     Route: 065
  5. NEURONTIN [Concomitant]
     Route: 065
  6. BENZOMETAN [Concomitant]
     Route: 065
  7. ALLEGRA [Concomitant]
     Route: 065
  8. AMITRIPTYLIN [Concomitant]
     Route: 065
  9. TEQUIN [Concomitant]
     Route: 065
  10. GUAIFENESIN [Concomitant]
     Route: 065
  11. TAGAMET [Concomitant]
     Route: 065
  12. HYDROCODONE BITARTRATE + ACETAMINOPHEN [Concomitant]
     Route: 065
  13. [THERAPY UNSPECIFIED] [Concomitant]
     Route: 065
  14. ELAVIL [Concomitant]
     Route: 065

REACTIONS (14)
  - ACUTE MYOCARDIAL INFARCTION [None]
  - BACK PAIN [None]
  - BLOOD CHOLESTEROL INCREASED [None]
  - CORONARY ARTERY DISEASE [None]
  - HEPATIC MASS [None]
  - HIATUS HERNIA [None]
  - INSOMNIA [None]
  - LIVER DISORDER [None]
  - OESOPHAGITIS [None]
  - PAIN IN EXTREMITY [None]
  - PERIPHERAL VASCULAR DISORDER [None]
  - POLYP [None]
  - SLEEP DISORDER [None]
  - TONGUE NEOPLASM MALIGNANT STAGE UNSPECIFIED [None]
